FAERS Safety Report 5005782-6 (Version None)
Quarter: 2006Q2

REPORT INFORMATION
  Report Type: 
  Country: None (occurrence: None)
  Receive Date: 20060515
  Receipt Date: 20060404
  Transmission Date: 20061013
  Serious: Yes (Hospitalization)
  Sender: FDA-Public Use
  Company Number: MPI 06 - 0003

PATIENT
  Age: 62 Year
  Sex: Female
  Weight: 61.6892 kg

DRUGS (8)
  1. ASCORBIC ACID INJ [Suspect]
     Route: 042
     Dates: start: 20060406
  2. B-COMPLEX 100 [Concomitant]
  3. CA GLUCONATE [Concomitant]
  4. MAGNESIUM SULFATE [Concomitant]
  5. M.V.I. [Concomitant]
  6. DEXAMETHASONE TAB [Concomitant]
  7. THIAMINE [Concomitant]
  8. GLUTATHIONE [Concomitant]

REACTIONS (1)
  - MENINGITIS [None]
